FAERS Safety Report 19215111 (Version 1)
Quarter: 2021Q2

REPORT INFORMATION
  Report Type: Spontaneous
  Country: CA (occurrence: CA)
  Receive Date: 20210505
  Receipt Date: 20210505
  Transmission Date: 20210717
  Serious: Yes (Other)
  Sender: FDA-Public Use
  Company Number: CA-ROCHE-2821621

PATIENT
  Age: 30 Year

DRUGS (1)
  1. RITUXAN [Suspect]
     Active Substance: RITUXIMAB
     Indication: IMMUNE THROMBOCYTOPENIA
     Dosage: 1 INFUSION IN FEB?2016 ;ONGOING: NO
     Route: 065
     Dates: start: 201602, end: 201602

REACTIONS (9)
  - Obsessive-compulsive disorder [Unknown]
  - Throat tightness [Unknown]
  - Urticaria [Recovered/Resolved]
  - Fatigue [Not Recovered/Not Resolved]
  - Anxiety [Unknown]
  - Dyspnoea [Unknown]
  - Off label use [Unknown]
  - Cerebral disorder [Unknown]
  - Depression [Unknown]

NARRATIVE: CASE EVENT DATE: 201602
